FAERS Safety Report 4958594-3 (Version None)
Quarter: 2006Q1

REPORT INFORMATION
  Report Type: 
  Country: None (occurrence: None)
  Receive Date: 20060201
  Receipt Date: 20051111
  Transmission Date: 20060701
  Serious: No
  Sender: FDA-Public Use
  Company Number: 2005PV005253

PATIENT
  Age: 72 Year
  Sex: Female
  Weight: 61.6892 kg

DRUGS (9)
  1. BYETTA [Suspect]
     Indication: DIABETES MELLITUS NON-INSULIN-DEPENDENT
     Dosage: 5 MCG; BID; SC
     Route: 058
     Dates: start: 20051110
  2. BYETTA [Suspect]
  3. BYETTA [Suspect]
  4. GLUCOPHAGE [Concomitant]
  5. AVANDIA [Concomitant]
  6. METOPROLOL TARTRATE [Concomitant]
  7. ASPIRIN [Concomitant]
  8. PROTONIX [Concomitant]
  9. METFORMIN [Concomitant]

REACTIONS (3)
  - DRUG INEFFECTIVE [None]
  - HYPOAESTHESIA ORAL [None]
  - NAUSEA [None]
